FAERS Safety Report 4391544-X (Version None)
Quarter: 2004Q3

REPORT INFORMATION
  Report Type: 
  Country: None (occurrence: None)
  Receive Date: 20040702
  Receipt Date: 20040421
  Transmission Date: 20050211
  Serious: Yes (Other)
  Sender: FDA-Public Use
  Company Number: 2004UW08132

PATIENT
  Sex: Female

DRUGS (1)
  1. CRESTOR [Suspect]

REACTIONS (4)
  - BLOOD IMMUNOGLOBULIN E INCREASED [None]
  - DERMATITIS ALLERGIC [None]
  - OEDEMA PERIPHERAL [None]
  - RASH [None]
